FAERS Safety Report 24399592 (Version 2)
Quarter: 2024Q4

REPORT INFORMATION
  Report Type: Spontaneous
  Country: US (occurrence: US)
  Receive Date: 20241005
  Receipt Date: 20241011
  Transmission Date: 20250114
  Serious: Yes (Hospitalization, Disabling, Other)
  Sender: ABBVIE
  Company Number: US-ABBVIE-5944463

PATIENT
  Age: 66 Year
  Sex: Female
  Weight: 91 kg

DRUGS (9)
  1. REFRESH TEARS [Suspect]
     Active Substance: CARBOXYMETHYLCELLULOSE SODIUM
     Indication: Dry eye
     Route: 047
     Dates: start: 2009
  2. MECLIZINE [Concomitant]
     Active Substance: MECLIZINE HYDROCHLORIDE
     Indication: Prophylaxis
  3. COVID-19 VACCINE NOS [Suspect]
     Active Substance: COVID-19 VACCINE
     Indication: COVID-19 prophylaxis
     Route: 030
  4. TYLENOL [Concomitant]
     Active Substance: ACETAMINOPHEN
     Indication: Pain
  5. REFRESH OPTIVE [Suspect]
     Active Substance: CARBOXYMETHYLCELLULOSE SODIUM\GLYCERIN
     Indication: Dry eye
     Route: 047
     Dates: start: 2009
  6. CALCIUM [Concomitant]
     Active Substance: CALCIUM
     Indication: Mineral supplementation
  7. REFRESH PLUS [Suspect]
     Active Substance: CARBOXYMETHYLCELLULOSE SODIUM
     Indication: Dry eye
     Route: 047
     Dates: start: 2009
  8. ALPRAZOLAM [Concomitant]
     Active Substance: ALPRAZOLAM
     Indication: Anxiety
  9. ALBUTEROL [Concomitant]
     Active Substance: ALBUTEROL
     Indication: Asthma

REACTIONS (25)
  - Disability [Unknown]
  - Foot fracture [Not Recovered/Not Resolved]
  - Nasopharyngitis [Not Recovered/Not Resolved]
  - Product storage error [Unknown]
  - Gait disturbance [Recovering/Resolving]
  - Corneal abrasion [Unknown]
  - Unevaluable event [Unknown]
  - Insomnia [Unknown]
  - Retinal vascular occlusion [Not Recovered/Not Resolved]
  - Ophthalmic vascular thrombosis [Unknown]
  - Ocular discomfort [Unknown]
  - Visual impairment [Unknown]
  - Weight decreased [Unknown]
  - Ophthalmic migraine [Unknown]
  - Vision blurred [Unknown]
  - Obstruction [Unknown]
  - Animal bite [Unknown]
  - Fall [Unknown]
  - Post-traumatic neck syndrome [Unknown]
  - Concussion [Unknown]
  - Carotid arteriosclerosis [Unknown]
  - Carotid arterial embolus [Unknown]
  - COVID-19 [Recovered/Resolved]
  - Eye disorder [Unknown]
  - Allergy to vaccine [Unknown]

NARRATIVE: CASE EVENT DATE: 20230401
